FAERS Safety Report 25541937 (Version 1)
Quarter: 2025Q3

REPORT INFORMATION
  Report Type: Spontaneous
  Country: US (occurrence: US)
  Receive Date: 20250711
  Receipt Date: 20250711
  Transmission Date: 20251021
  Serious: Yes (Hospitalization)
  Sender: MERCK SHARP & DOHME LLC
  Company Number: US-MLMSERVICE-20250627-PI558085-00186-1

PATIENT

DRUGS (2)
  1. IVERMECTIN [Interacting]
     Active Substance: IVERMECTIN
     Indication: Metastases to lung
     Route: 048
  2. REGORAFENIB [Interacting]
     Active Substance: REGORAFENIB
     Indication: Metastases to lung

REACTIONS (4)
  - Neurotoxicity [Recovered/Resolved]
  - Prescription drug used without a prescription [Unknown]
  - Drug interaction [Recovered/Resolved]
  - Intentional product misuse [Unknown]
